FAERS Safety Report 4332067-3 (Version None)
Quarter: 2004Q1

REPORT INFORMATION
  Report Type: 
  Country: None (occurrence: None)
  Receive Date: 20040330
  Receipt Date: 20040316
  Transmission Date: 20041129
  Serious: Yes (Hospitalization, Other)
  Sender: FDA-Public Use
  Company Number: 235928

PATIENT

DRUGS (2)
  1. NOVORAPID PENFILL (INSULIN ASPART) SOLUTION FOR INJECTION, 100U/MOL [Suspect]
     Indication: DIABETES MELLITUS
     Dosage: 30 IU, QD, SUBCUTANEOUS
     Route: 058
     Dates: start: 20030111
  2. PROTOPHANE PENFILL (INSULIN HUMAN) SUSPECSION FOR INJECTION, 100 IU/ML [Concomitant]

REACTIONS (2)
  - HYPOGLYCAEMIA NEONATAL [None]
  - MATERNAL DRUGS AFFECTING FOETUS [None]
